FAERS Safety Report 15012499 (Version 1)
Quarter: 2018Q2

REPORT INFORMATION
  Report Type: Spontaneous
  Country: US (occurrence: US)
  Receive Date: 20180530
  Receipt Date: 20180530
  Transmission Date: 20180711
  Serious: Yes (Life-Threatening, Other)
  Sender: FDA-Public Use
  Company Number: None

PATIENT
  Age: 46 Year
  Sex: Female
  Weight: 46.8 kg

DRUGS (7)
  1. PROZAC [Concomitant]
     Active Substance: FLUOXETINE HYDROCHLORIDE
  2. TRAZODONE [Concomitant]
     Active Substance: TRAZODONE HYDROCHLORIDE
  3. MYDAYIS [Concomitant]
     Active Substance: AMPHETAMINE ASPARTATE\AMPHETAMINE SULFATE\DEXTROAMPHETAMINE SACCHARATE\DEXTROAMPHETAMINE SULFATE
  4. VYVANSE [Suspect]
     Active Substance: LISDEXAMFETAMINE DIMESYLATE
     Indication: ATTENTION DEFICIT/HYPERACTIVITY DISORDER
     Dates: start: 20180217, end: 20180223
  5. GUANFACINE. [Concomitant]
     Active Substance: GUANFACINE
  6. FLONASE [Concomitant]
     Active Substance: FLUTICASONE PROPIONATE
  7. KLONOPIN [Concomitant]
     Active Substance: CLONAZEPAM

REACTIONS (10)
  - Depression [None]
  - Tachyphrenia [None]
  - Gait disturbance [None]
  - Suicidal ideation [None]
  - Drug ineffective [None]
  - Cerebrovascular accident [None]
  - Dyskinesia [None]
  - Product substitution issue [None]
  - Inability to afford medication [None]
  - Vomiting [None]

NARRATIVE: CASE EVENT DATE: 20180314
